FAERS Safety Report 11700297 (Version 1)
Quarter: 2015Q4

REPORT INFORMATION
  Report Type: Spontaneous
  Country: US (occurrence: US)
  Receive Date: 20151105
  Receipt Date: 20151105
  Transmission Date: 20160304
  Serious: No
  Sender: FDA-Public Use
  Company Number: US-PFIZER INC-2015374165

PATIENT
  Age: 50 Year
  Sex: Female

DRUGS (1)
  1. EMBEDA [Suspect]
     Active Substance: MORPHINE SULFATE\NALTREXONE HYDROCHLORIDE
     Dosage: 1 DF (50MG/2MG), 1X/DAY
     Route: 048
     Dates: start: 20151001

REACTIONS (3)
  - Tremor [Unknown]
  - Hallucination [Unknown]
  - Vomiting [Unknown]
